FAERS Safety Report 6523095-8 (Version None)
Quarter: 2009Q4

REPORT INFORMATION
  Report Type: 
  Country: None (occurrence: None)
  Receive Date: 20091222
  Receipt Date: 20091208
  Transmission Date: 20100525
  Serious: Yes (Hospitalization)
  Sender: FDA-Public Use
  Company Number: DE-1180096

PATIENT
  Age: 83 Year
  Sex: Female

DRUGS (11)
  1. FLUORESCITE [Suspect]
     Indication: RETINAL VEIN OCCLUSION
     Dosage: 5 ML (1.6 ML/SEC)
     Route: 040
     Dates: start: 20090622, end: 20090622
  2. AMITRIPTYLINE AND PSYCHOLEPTICS (AMITRIPTYLINE AND PSYCHOLEPTICS) [Concomitant]
  3. CALCIGEN D(LEKOVIT CA) [Concomitant]
  4. DICLOFENAC (DICLOFENAC DIETHYLAMINE) [Concomitant]
  5. ISOSORBIDE DINITRATE [Concomitant]
  6. METFORMIN HEXAL (METFORMIN HYDROCHLORIDE) [Concomitant]
  7. METOHEXAL SUCC (METOPROLOL SUCCINATE) [Concomitant]
  8. RAMIPRIL [Concomitant]
  9. RANITIDIN (RANITIDINE HYDRROCHLORIDE) [Concomitant]
  10. SIMVASTATIN [Concomitant]
  11. ASPIRIN [Concomitant]

REACTIONS (14)
  - ABDOMINAL PAIN UPPER [None]
  - ACTIVATED PARTIAL THROMBOPLASTIN TIME PROLONGED [None]
  - BLOOD CHOLESTEROL INCREASED [None]
  - BLOOD GLUCOSE INCREASED [None]
  - BLOOD PRESSURE DECREASED [None]
  - BLOOD THYROID STIMULATING HORMONE DECREASED [None]
  - DRUG HYPERSENSITIVITY [None]
  - HAEMATOMA [None]
  - HAEMOGLOBIN DECREASED [None]
  - HEPATIC STEATOSIS [None]
  - IDIOPATHIC THROMBOCYTOPENIC PURPURA [None]
  - LOSS OF CONSCIOUSNESS [None]
  - MUSCLE SPASMS [None]
  - TONGUE BITING [None]
